FAERS Safety Report 4478589-6 (Version None)
Quarter: 2004Q4

REPORT INFORMATION
  Report Type: 
  Country: None (occurrence: None)
  Receive Date: 20041019
  Receipt Date: 20041011
  Transmission Date: 20050328
  Serious: Yes (Death, Life-Threatening)
  Sender: FDA-Public Use
  Company Number: FR-JNJFOC-20041003303

PATIENT
  Age: 36 Year
  Sex: Male

DRUGS (6)
  1. CAELYX [Suspect]
     Indication: LYMPHOMA
     Dosage: X 2 CYCLES
     Route: 042
  2. VIDEX [Suspect]
     Indication: HIV INFECTION
  3. EPIVIR [Suspect]
     Indication: HIV INFECTION
  4. ATOVAQUONE [Suspect]
  5. KALETRA [Suspect]
  6. KALETRA [Suspect]
     Indication: HIV INFECTION

REACTIONS (5)
  - HAEMOLYTIC ANAEMIA [None]
  - PNEUMOCYSTIS CARINII PNEUMONIA [None]
  - PROTHROMBIN TIME RATIO DECREASED [None]
  - THROMBOCYTOPENIA [None]
  - THROMBOCYTOPENIC PURPURA [None]
